FAERS Safety Report 25497280 (Version 1)
Quarter: 2025Q3

REPORT INFORMATION
  Report Type: Spontaneous
  Country: US (occurrence: US)
  Receive Date: 20250701
  Receipt Date: 20250701
  Transmission Date: 20251020
  Serious: Yes (Other)
  Sender: NOVO NORDISK
  Company Number: US-NOVOPROD-1467293

PATIENT
  Sex: Female
  Weight: 95.238 kg

DRUGS (1)
  1. OZEMPIC [Suspect]
     Active Substance: SEMAGLUTIDE
     Indication: Type 2 diabetes mellitus
     Route: 058

REACTIONS (4)
  - Psoriatic arthropathy [Unknown]
  - Hunger [Unknown]
  - Weight decreased [Unknown]
  - Injection site bruising [Unknown]
